FAERS Safety Report 10971012 (Version 1)
Quarter: 2015Q1

REPORT INFORMATION
  Report Type: Spontaneous
  Country: US (occurrence: None)
  Receive Date: 20150226
  Receipt Date: 20150226
  Transmission Date: 20150721
  Serious: No
  Sender: FDA-Public Use
  Company Number: TPA2009A01130

PATIENT
  Age: 78 Year
  Sex: Female
  Weight: 88.4 kg

DRUGS (6)
  1. ULORIC [Suspect]
     Active Substance: FEBUXOSTAT
     Indication: GOUT
     Dosage: 1 IN 1 D
     Route: 048
     Dates: start: 20090507, end: 20090518
  2. LISINOPRIL. [Concomitant]
     Active Substance: LISINOPRIL
  3. COLCHICINE. [Concomitant]
     Active Substance: COLCHICINE
  4. ARANESP [Concomitant]
     Active Substance: DARBEPOETIN ALFA
  5. AVANDIA (ROSIGLITAZONE MALEATE) [Concomitant]
  6. LOVASTATIN. [Concomitant]
     Active Substance: LOVASTATIN

REACTIONS (2)
  - Rash maculo-papular [None]
  - Pruritus [None]

NARRATIVE: CASE EVENT DATE: 20090516
